FAERS Safety Report 11446190 (Version 1)
Quarter: 2015Q3

REPORT INFORMATION
  Report Type: Spontaneous
  Country: US (occurrence: US)
  Receive Date: 20150902
  Receipt Date: 20150902
  Transmission Date: 20151125
  Serious: No
  Sender: FDA-Public Use
  Company Number: US-ACTELION PHARMACEUTICALS US, INC.-A-NJ2015-122419

PATIENT
  Age: 82 Year
  Sex: Male
  Weight: 85.26 kg

DRUGS (1)
  1. OPSUMIT [Suspect]
     Active Substance: MACITENTAN
     Indication: PULMONARY ARTERIAL HYPERTENSION
     Dosage: 10 MG, QD
     Route: 048
     Dates: start: 20150624, end: 20150812

REACTIONS (11)
  - Anaemia [Recovering/Resolving]
  - Abdominal pain upper [Not Recovered/Not Resolved]
  - Red blood cell count decreased [Recovering/Resolving]
  - Dyspnoea exertional [Not Recovered/Not Resolved]
  - Fatigue [Recovering/Resolving]
  - Pain [Unknown]
  - Nausea [Unknown]
  - Headache [Not Recovered/Not Resolved]
  - Asthenia [Not Recovered/Not Resolved]
  - Dyspnoea [Recovering/Resolving]
  - Exercise tolerance decreased [Not Recovered/Not Resolved]

NARRATIVE: CASE EVENT DATE: 20150720
